FAERS Safety Report 24762159 (Version 1)
Quarter: 2024Q4

REPORT INFORMATION
  Report Type: Spontaneous
  Country: PL (occurrence: PL)
  Receive Date: 20241221
  Receipt Date: 20241221
  Transmission Date: 20250114
  Serious: Yes (Other)
  Sender: AUROBINDO
  Company Number: PL-EMA-DD-20241205-7482705-052621

PATIENT
  Sex: Female

DRUGS (2)
  1. AMOXICILLIN [Suspect]
     Active Substance: AMOXICILLIN
     Indication: Cystitis
     Dosage: 500 MILLIGRAM, 3 TIMES A DAY (500 MG, EVERY 8 HOURS (1 DOSAGE FORM IN 8 HOUR))
     Route: 048
  2. AMOXICILLIN [Suspect]
     Active Substance: AMOXICILLIN
     Indication: Beta haemolytic streptococcal infection

REACTIONS (4)
  - Depressed level of consciousness [Unknown]
  - Asthenia [Unknown]
  - Diarrhoea [Unknown]
  - Exposure during pregnancy [Unknown]
